FAERS Safety Report 17810025 (Version 2)
Quarter: 2020Q2

REPORT INFORMATION
  Report Type: Spontaneous
  Country: US (occurrence: US)
  Receive Date: 20200521
  Receipt Date: 20200605
  Transmission Date: 20200714
  Serious: Yes (Death)
  Sender: FDA-Public Use
  Company Number: US-ROCHE-2605244

PATIENT
  Age: 78 Year
  Sex: Male

DRUGS (1)
  1. ESBRIET [Suspect]
     Active Substance: PIRFENIDONE
     Indication: ACUTE INTERSTITIAL PNEUMONITIS
     Route: 048
     Dates: start: 2018, end: 20200505

REACTIONS (3)
  - Intentional product use issue [Unknown]
  - Off label use [Fatal]
  - Death [Fatal]

NARRATIVE: CASE EVENT DATE: 20200505
